FAERS Safety Report 11506945 (Version 1)
Quarter: 2015Q3

REPORT INFORMATION
  Report Type: Spontaneous
  Country: US (occurrence: None)
  Receive Date: 20150914
  Receipt Date: 20150914
  Transmission Date: 20151125
  Serious: Yes (Disabling)
  Sender: FDA-Public Use
  Company Number: None

PATIENT
  Age: 46 Year
  Sex: Female
  Weight: 63.5 kg

DRUGS (2)
  1. PLAQUENIL [Concomitant]
     Active Substance: HYDROXYCHLOROQUINE SULFATE
  2. LEVOFLOXACIN 500MG DON^T KNOW [Suspect]
     Active Substance: LEVOFLOXACIN
     Indication: TOOTHACHE
     Route: 048

REACTIONS (2)
  - Periarthritis [None]
  - Joint range of motion decreased [None]

NARRATIVE: CASE EVENT DATE: 20150215
